FAERS Safety Report 16393572 (Version 2)
Quarter: 2019Q4

REPORT INFORMATION
  Report Type: Spontaneous
  Country: FR (occurrence: FR)
  Receive Date: 20190605
  Receipt Date: 20191028
  Transmission Date: 20200122
  Serious: Yes (Hospitalization, Other)
  Sender: FDA-Public Use
  Company Number: FR-PFIZER INC-2019236232

PATIENT
  Age: 83 Year
  Sex: Female

DRUGS (14)
  1. TAGAMET [Concomitant]
     Active Substance: CIMETIDINE
     Dosage: 800 MG, UNK
     Route: 065
  2. BACTRIM [Suspect]
     Active Substance: SULFAMETHOXAZOLE\TRIMETHOPRIM
     Dosage: 1 DF (0.4286), THRICE WEEKLY
     Route: 048
     Dates: start: 20130704, end: 20130819
  3. LEVACT [Suspect]
     Active Substance: BENDAMUSTINE HYDROCHLORIDE
     Indication: B-CELL LYMPHOMA
     Dosage: 90 MG/M2, CYCLIC (2 IN 1 MONTH) (POWDER)
     Route: 042
     Dates: start: 20130703, end: 20130801
  4. MABTHERA [Suspect]
     Active Substance: RITUXIMAB
     Indication: B-CELL LYMPHOMA
     Dosage: 375 MG/M2, 1X/DAY
     Route: 042
     Dates: start: 20130703, end: 20130731
  5. AERIUS (DESLORATADINE) [Concomitant]
     Active Substance: DESLORATADINE
     Indication: FACE OEDEMA
     Dosage: UNK
     Route: 065
     Dates: start: 20130802
  6. ATARAX [Concomitant]
     Active Substance: HYDROXYZINE HYDROCHLORIDE
     Dosage: 50 MG, UNK
     Route: 065
  7. METHYLPREDNISOLONE. [Suspect]
     Active Substance: METHYLPREDNISOLONE
     Indication: NON-HODGKIN^S LYMPHOMA
  8. CIPLOX [CIPROFLOXACIN] [Suspect]
     Active Substance: CIPROFLOXACIN
     Indication: PYREXIA
     Dosage: 500 MG, 1X/DAY
     Route: 048
     Dates: start: 20130818, end: 20130819
  9. ZINNAT [CEFUROXIME SODIUM] [Suspect]
     Active Substance: CEFUROXIME SODIUM
     Indication: PYREXIA
     Dosage: 500 MG, UNK
     Route: 065
     Dates: start: 20130818
  10. LEVACT [Suspect]
     Active Substance: BENDAMUSTINE HYDROCHLORIDE
     Indication: NON-HODGKIN^S LYMPHOMA
     Dosage: 90 MG/M2, CYCLIC (2 IN 1 MONTH) (POWDER)
     Route: 042
     Dates: start: 20130731, end: 20130801
  11. METHYLPREDNISOLONE. [Suspect]
     Active Substance: METHYLPREDNISOLONE
     Indication: B-CELL LYMPHOMA
     Dosage: 40 MG, UNK
     Dates: start: 201307
  12. MOTILIUM [Suspect]
     Active Substance: DOMPERIDONE
     Dosage: 500 MG, 1X/DAY
     Route: 065
     Dates: start: 20130814, end: 20130815
  13. MABTHERA [Suspect]
     Active Substance: RITUXIMAB
     Indication: NON-HODGKIN^S LYMPHOMA
     Dosage: 375 MG/M2, 1X/DAY
     Route: 042
     Dates: start: 20130731, end: 20130731
  14. LASILIX [FUROSEMIDE] [Concomitant]
     Active Substance: FUROSEMIDE
     Dosage: UNK
     Route: 065
     Dates: start: 20130801

REACTIONS (7)
  - Pancytopenia [Recovering/Resolving]
  - Rash maculo-papular [Unknown]
  - Leukopenia [Unknown]
  - Febrile neutropenia [Recovering/Resolving]
  - Prescribed underdose [Unknown]
  - Agranulocytosis [Recovered/Resolved]
  - Toxic skin eruption [Recovered/Resolved]

NARRATIVE: CASE EVENT DATE: 20130703
